FAERS Safety Report 7869126-4 (Version None)
Quarter: 2011Q4

REPORT INFORMATION
  Report Type: 
  Country: None (occurrence: None)
  Receive Date: 20111028
  Receipt Date: 20101228
  Transmission Date: 20120403
  Serious: No
  Sender: FDA-Public Use
  Company Number: US-AMGEN-USASP2010011882

PATIENT
  Age: 29 Year
  Weight: 86.168 kg

DRUGS (1)
  1. ENBREL [Suspect]
     Indication: PSORIASIS
     Dosage: 50 MG, UNK
     Route: 058
     Dates: start: 20100415

REACTIONS (3)
  - NASOPHARYNGITIS [None]
  - CHEST DISCOMFORT [None]
  - DIARRHOEA [None]
